FAERS Safety Report 16554927 (Version 1)
Quarter: 2019Q3

REPORT INFORMATION
  Report Type: Spontaneous
  Country: JP (occurrence: JP)
  Receive Date: 20190710
  Receipt Date: 20190710
  Transmission Date: 20191004
  Serious: Yes (Other)
  Sender: FDA-Public Use
  Company Number: JP-ASTRAZENECA-2019SE97588

PATIENT
  Age: 60 Year
  Sex: Female

DRUGS (1)
  1. FASENRA [Suspect]
     Active Substance: BENRALIZUMAB
     Indication: ASTHMA
     Dosage: 1.0ML UNKNOWN
     Route: 058
     Dates: start: 20190617

REACTIONS (2)
  - Physical deconditioning [Unknown]
  - Hypoxia [Recovering/Resolving]

NARRATIVE: CASE EVENT DATE: 20190617
